FAERS Safety Report 9826209 (Version 2)
Quarter: 2014Q1

REPORT INFORMATION
  Report Type: Report from Study
  Country: JP (occurrence: JP)
  Receive Date: 20140117
  Receipt Date: 20140206
  Transmission Date: 20141002
  Serious: Yes (Hospitalization)
  Sender: FDA-Public Use
  Company Number: JP-009507513-1401JPN004488

PATIENT
  Age: 72 Year
  Sex: Female

DRUGS (3)
  1. PEGINTRON [Suspect]
     Indication: CHRONIC HEPATITIS C
     Dosage: DAILY DOSE UNKNOWN
     Route: 058
     Dates: start: 20130321
  2. REBETOL [Suspect]
     Indication: CHRONIC HEPATITIS C
     Dosage: DAILY DOSE UNKNOWN
     Route: 048
     Dates: start: 20130321
  3. TELAVIC [Suspect]
     Indication: CHRONIC HEPATITIS C
     Dosage: DAILY DOSE UNKNOWN
     Route: 048
     Dates: start: 20130321

REACTIONS (1)
  - Depression [Recovering/Resolving]
